FAERS Safety Report 5034332-3 (Version None)
Quarter: 2006Q2

REPORT INFORMATION
  Report Type: 
  Country: None (occurrence: None)
  Receive Date: 20060626
  Receipt Date: 20060615
  Transmission Date: 20061013
  Serious: Yes (Life-Threatening)
  Sender: FDA-Public Use
  Company Number: JP-SANOFI-SYNTHELABO-A01200604737

PATIENT
  Age: 70 Year
  Sex: Male

DRUGS (3)
  1. FLUOROURACIL [Suspect]
     Dosage: BOLUS NOS FOLLOWED BY INFUSION NOS.
     Route: 042
  2. CALCIUM LEVOFOLINATE [Suspect]
     Route: 042
     Dates: start: 20060613, end: 20060613
  3. OXALIPLATIN [Suspect]
     Route: 042
     Dates: start: 20060613, end: 20060613

REACTIONS (2)
  - CARDIO-RESPIRATORY ARREST [None]
  - EPILEPSY [None]
